FAERS Safety Report 5627125-7 (Version None)
Quarter: 2008Q1

REPORT INFORMATION
  Report Type: 
  Country: None (occurrence: None)
  Receive Date: 20080212
  Receipt Date: 20080212
  Transmission Date: 20080703
  Serious: Yes (Other)
  Sender: FDA-Public Use
  Company Number: None

PATIENT
  Age: 60 Year
  Sex: Female
  Weight: 48.0813 kg

DRUGS (1)
  1. BOTOX [Suspect]
     Indication: TORTICOLLIS

REACTIONS (7)
  - ASTHENIA [None]
  - CHOKING [None]
  - COUGH [None]
  - DYSPHAGIA [None]
  - JOINT RANGE OF MOTION DECREASED [None]
  - MOVEMENT DISORDER [None]
  - MUSCULOSKELETAL STIFFNESS [None]
